FAERS Safety Report 17850359 (Version 1)
Quarter: 2020Q2

REPORT INFORMATION
  Report Type: Spontaneous
  Country: DE (occurrence: DE)
  Receive Date: 20200602
  Receipt Date: 20200602
  Transmission Date: 20200714
  Serious: Yes (Disabling)
  Sender: FDA-Public Use
  Company Number: DE-PFIZER INC-2020212309

PATIENT
  Age: 33 Year
  Sex: Female
  Weight: 82 kg

DRUGS (1)
  1. CYTOTEC [Suspect]
     Active Substance: MISOPROSTOL
     Indication: LABOUR INDUCTION
     Dosage: 100 UG, SINGLE (2X 50 MICROGRAMS)
     Route: 048
     Dates: start: 20180603, end: 20180603

REACTIONS (5)
  - Product use in unapproved indication [Unknown]
  - Precipitate labour [Recovered/Resolved with Sequelae]
  - Uterine tachysystole [Recovered/Resolved with Sequelae]
  - Perineal disorder [Not Recovered/Not Resolved]
  - Off label use [Unknown]

NARRATIVE: CASE EVENT DATE: 20180603
